FAERS Safety Report 19499780 (Version 2)
Quarter: 2022Q1

REPORT INFORMATION
  Report Type: Spontaneous
  Country: JO (occurrence: None)
  Receive Date: 20210706
  Receipt Date: 20220105
  Transmission Date: 20220424
  Serious: Yes (Death)
  Sender: FDA-Public Use
  Company Number: 2021A588053

PATIENT
  Age: 77 Year
  Sex: Male

DRUGS (1)
  1. TAGRISSO [Suspect]
     Active Substance: OSIMERTINIB
     Indication: Non-small cell lung cancer
     Route: 048
     Dates: start: 20210410

REACTIONS (1)
  - Death [Fatal]

NARRATIVE: CASE EVENT DATE: 20210629
